FAERS Safety Report 17903561 (Version 2)
Quarter: 2020Q2

REPORT INFORMATION
  Report Type: Spontaneous
  Country: FR (occurrence: FR)
  Receive Date: 20200616
  Receipt Date: 20200623
  Transmission Date: 20200714
  Serious: Yes (Death, Other)
  Sender: FDA-Public Use
  Company Number: NVSC2020FR168417

PATIENT
  Sex: Male

DRUGS (8)
  1. METHOTREXATE. [Concomitant]
     Active Substance: METHOTREXATE
     Indication: PRODUCT USED FOR UNKNOWN INDICATION
     Dosage: UNK
     Route: 065
  2. KYMRIAH [Suspect]
     Active Substance: TISAGENLECLEUCEL
     Indication: ACUTE LYMPHOCYTIC LEUKAEMIA
     Dosage: UNK
     Route: 065
     Dates: start: 20200507, end: 20200507
  3. CIPROFLOXACINE [Concomitant]
     Active Substance: CIPROFLOXACIN
     Indication: ACINETOBACTER BACTERAEMIA
     Dosage: UNK
     Route: 065
     Dates: start: 201903
  4. TEICOPLANINE [Concomitant]
     Active Substance: TEICOPLANIN
     Indication: STAPHYLOCOCCAL BACTERAEMIA
     Dosage: UNK
     Route: 065
     Dates: start: 201807
  5. OLANZAPINE. [Concomitant]
     Active Substance: OLANZAPINE
     Indication: PSYCHOTIC DISORDER
     Dosage: UNK
     Route: 065
     Dates: start: 201812
  6. TERCIAN [Concomitant]
     Active Substance: CYAMEMAZINE
     Indication: PSYCHOTIC DISORDER
     Dosage: UNK
     Route: 065
     Dates: start: 201812
  7. CEFTAZIDIME. [Concomitant]
     Active Substance: CEFTAZIDIME
     Indication: ACINETOBACTER BACTERAEMIA
     Dosage: UNK
     Route: 065
     Dates: start: 201903
  8. VANCOMYCIN [Concomitant]
     Active Substance: VANCOMYCIN
     Indication: STAPHYLOCOCCAL BACTERAEMIA
     Dosage: UNK
     Route: 065
     Dates: start: 201905

REACTIONS (4)
  - Cytokine release syndrome [Fatal]
  - Immune effector cell-associated neurotoxicity syndrome [Unknown]
  - Disseminated intravascular coagulation [Fatal]
  - Shock haemorrhagic [Fatal]
